FAERS Safety Report 5956461-X (Version None)
Quarter: 2008Q4

REPORT INFORMATION
  Report Type: 
  Country: None (occurrence: None)
  Receive Date: 20081118
  Receipt Date: 20081113
  Transmission Date: 20090506
  Serious: Yes (Other)
  Sender: FDA-Public Use
  Company Number: ES-BRISTOL-MYERS SQUIBB COMPANY-14405450

PATIENT
  Age: 37 Year
  Sex: Male

DRUGS (2)
  1. ABILIFY [Suspect]
     Indication: SCHIZOAFFECTIVE DISORDER
     Dosage: 10MG TABS 28 TABLETS
     Route: 048
     Dates: start: 20080821, end: 20080828
  2. ZYPREXA [Suspect]
     Indication: SCHIZOAFFECTIVE DISORDER
     Dosage: STRENGTH 10MG, FORM = TABS. 10MG 28 TABS
     Route: 048
     Dates: start: 20050101, end: 20080820

REACTIONS (2)
  - DIABETES MELLITUS [None]
  - OBESITY [None]
